FAERS Safety Report 4296087-X (Version None)
Quarter: 2004Q1

REPORT INFORMATION
  Report Type: 
  Country: None (occurrence: None)
  Receive Date: 20040213
  Receipt Date: 20040213
  Transmission Date: 20041129
  Serious: Yes (Other)
  Sender: FDA-Public Use
  Company Number: None

PATIENT
  Age: 16 Year
  Sex: Female
  Weight: 81.6475 kg

DRUGS (2)
  1. ZOLOFT [Suspect]
     Indication: DEPRESSION
     Dosage: 200 MG ONCE/DAY ORAL
     Route: 048
     Dates: start: 20031105, end: 20040208
  2. ABILIFY [Suspect]
     Dosage: 30MG ONCE/DAY ORAL
     Route: 048

REACTIONS (4)
  - DIZZINESS [None]
  - FEELING ABNORMAL [None]
  - RESTLESSNESS [None]
  - TREMOR [None]
